FAERS Safety Report 8922779 (Version 1)
Quarter: 2012Q4

REPORT INFORMATION
  Report Type: 
  Country: MX (occurrence: MX)
  Receive Date: 20121123
  Receipt Date: 20121123
  Transmission Date: 20130627
  Serious: Yes (Other)
  Sender: FDA-Public Use
  Company Number: PHHY2012MX106226

PATIENT
  Age: 59 Year
  Sex: Female

DRUGS (5)
  1. ACLASTA [Suspect]
     Indication: OSTEOPOROSIS
     Dosage: 5 mg/100 ml, once a year
     Route: 042
     Dates: start: 20091016
  2. DOLAREN                            /01615701/ [Concomitant]
     Dosage: 2 UNK, daily
  3. ZALDIAR [Concomitant]
     Indication: PAIN
     Dosage: 1 DF, Q8H
  4. DYNASTAT [Concomitant]
     Indication: PAIN
     Dosage: 1 DF, daily
  5. CALTRATE D                         /00944201/ [Concomitant]
     Indication: BLOOD CALCIUM ABNORMAL
     Dosage: 1 DF, daily

REACTIONS (3)
  - Fall [Not Recovered/Not Resolved]
  - Spinal compression fracture [Not Recovered/Not Resolved]
  - Arthralgia [Not Recovered/Not Resolved]
